FAERS Safety Report 5751359-4 (Version None)
Quarter: 2008Q2

REPORT INFORMATION
  Report Type: 
  Country: None (occurrence: None)
  Receive Date: 20080528
  Receipt Date: 20080523
  Transmission Date: 20081010
  Serious: Yes (Death, Hospitalization)
  Sender: FDA-Public Use
  Company Number: JP-ABBOTT-07P-087-0373519-00

PATIENT
  Sex: Male

DRUGS (17)
  1. KALETRA [Suspect]
     Indication: HIV INFECTION
     Route: 048
     Dates: start: 20060401, end: 20061107
  2. KALETRA [Suspect]
     Indication: HIV INFECTION
     Dosage: 800/200MG DAILY
     Route: 048
     Dates: start: 20061108, end: 20071005
  3. EFAVIRENZ [Suspect]
     Indication: HIV INFECTION
     Route: 048
     Dates: start: 20060401, end: 20071005
  4. FLUCONAZOLE [Suspect]
     Indication: PROPHYLAXIS
     Route: 048
     Dates: start: 20060401, end: 20071004
  5. FLUCONAZOLE [Suspect]
     Indication: FUNGAL INFECTION
     Route: 048
     Dates: start: 20071112, end: 20080226
  6. SULFAMETHOXAZOLE AND TRIMETHOPRIM [Suspect]
     Indication: ANTIFUNGAL PROPHYLAXIS
     Dosage: 2000 MG 3 TIMES PER WEEK
     Route: 048
     Dates: start: 20060401, end: 20080226
  7. NORVIR [Suspect]
     Indication: HIV INFECTION
     Route: 048
     Dates: start: 20071205, end: 20080226
  8. BEZAFIBRATE [Concomitant]
     Indication: HYPERLIPIDAEMIA
     Route: 048
     Dates: start: 20060512, end: 20060803
  9. DARUNAVIR [Concomitant]
     Indication: HIV INFECTION
     Route: 048
     Dates: start: 20071205, end: 20080226
  10. BERBERINE CHLORIDE HYDRATE/GERANIUM HERB EXTRACT [Concomitant]
     Indication: DIARRHOEA
     Route: 048
     Dates: start: 20071030, end: 20071116
  11. MICAFUNGIN SODIUM [Concomitant]
     Indication: FUNGAL INFECTION
     Route: 042
     Dates: start: 20071109, end: 20071111
  12. MICAFUNGIN SODIUM [Concomitant]
     Indication: PROPHYLAXIS
  13. METOCLOPRAMIDE [Concomitant]
     Indication: NAUSEA
     Route: 048
     Dates: start: 20071113, end: 20071226
  14. LOPERAMIDE HYDROCHLORIDE [Concomitant]
     Indication: DIARRHOEA
     Route: 048
     Dates: start: 20071127, end: 20071207
  15. ITRACONAZOLE [Concomitant]
     Indication: PROPHYLAXIS
     Route: 048
     Dates: start: 20080208, end: 20080220
  16. ITRACONAZOLE [Concomitant]
     Indication: FUNGAL INFECTION
  17. VANCOMYCIN HYDROCHLORIDE [Concomitant]
     Indication: STAPHYLOCOCCAL INFECTION
     Route: 042
     Dates: start: 20080224, end: 20080306

REACTIONS (9)
  - ASCITES [None]
  - BLOOD ALKALINE PHOSPHATASE INCREASED [None]
  - DEHYDRATION [None]
  - GAMMA-GLUTAMYLTRANSFERASE INCREASED [None]
  - HYPERLIPIDAEMIA [None]
  - HYPOKALAEMIA [None]
  - INTERSTITIAL LUNG DISEASE [None]
  - MALNUTRITION [None]
  - PLEURAL EFFUSION [None]
